FAERS Safety Report 14516137 (Version 2)
Quarter: 2020Q3

REPORT INFORMATION
  Report Type: Report from Study
  Country: US (occurrence: US)
  Receive Date: 20180211
  Receipt Date: 20200810
  Transmission Date: 20201102
  Serious: Yes (Hospitalization, Other)
  Sender: FDA-Public Use
  Company Number: US-SHIRE-US201804478

PATIENT
  Age: 60 Year
  Sex: Male
  Weight: 61.22 kg

DRUGS (19)
  1. TEDUGLUTIDE [Suspect]
     Active Substance: TEDUGLUTIDE
     Dosage: 3.5 MG, 1X/DAY:QD
     Route: 065
     Dates: start: 20160830
  2. TEDUGLUTIDE [Suspect]
     Active Substance: TEDUGLUTIDE
     Dosage: 3.5 MG, 1X/DAY:QD
     Route: 065
     Dates: start: 20160817, end: 20160829
  3. TEDUGLUTIDE [Suspect]
     Active Substance: TEDUGLUTIDE
     Dosage: UNK UNK, 1X/DAY:QD
     Route: 065
     Dates: start: 20170724
  4. TEDUGLUTIDE [Suspect]
     Active Substance: TEDUGLUTIDE
     Dosage: UNK UNK, 1X/DAY:QD
     Route: 065
     Dates: start: 20170724
  5. TEDUGLUTIDE [Suspect]
     Active Substance: TEDUGLUTIDE
     Indication: SHORT-BOWEL SYNDROME
     Dosage: 3.5 MG, 1X/DAY:QD
     Route: 065
     Dates: start: 20131212, end: 20160816
  6. TEDUGLUTIDE [Suspect]
     Active Substance: TEDUGLUTIDE
     Dosage: 3.5 MG, 1X/DAY:QD
     Route: 065
     Dates: start: 20160817, end: 20160829
  7. TEDUGLUTIDE [Suspect]
     Active Substance: TEDUGLUTIDE
     Dosage: 3.5 MG, 1X/DAY:QD
     Route: 065
     Dates: start: 20160830
  8. TEDUGLUTIDE [Suspect]
     Active Substance: TEDUGLUTIDE
     Indication: SHORT-BOWEL SYNDROME
     Dosage: 3.5 MG, 1X/DAY:QD
     Route: 065
     Dates: start: 20131212, end: 20160816
  9. TEDUGLUTIDE [Suspect]
     Active Substance: TEDUGLUTIDE
     Dosage: 3.5 MG, 1X/DAY:QD
     Route: 065
     Dates: start: 20160817, end: 20160829
  10. ELIQUIS [Concomitant]
     Active Substance: APIXABAN
     Indication: THROMBOSIS PROPHYLAXIS
  11. TEDUGLUTIDE [Suspect]
     Active Substance: TEDUGLUTIDE
     Indication: SHORT-BOWEL SYNDROME
     Dosage: 3.5 MG, 1X/DAY:QD
     Route: 065
     Dates: start: 20131212, end: 20160816
  12. TEDUGLUTIDE [Suspect]
     Active Substance: TEDUGLUTIDE
     Dosage: 3.5 MG, 1X/DAY:QD
     Route: 065
     Dates: start: 20160817, end: 20160829
  13. TEDUGLUTIDE [Suspect]
     Active Substance: TEDUGLUTIDE
     Dosage: 3.5 MG, 1X/DAY:QD
     Route: 065
     Dates: start: 20160830
  14. TEDUGLUTIDE [Suspect]
     Active Substance: TEDUGLUTIDE
     Indication: SHORT-BOWEL SYNDROME
     Dosage: 3.5 MG, 1X/DAY:QD
     Route: 065
     Dates: start: 20131212, end: 20160816
  15. LOVENOX [Concomitant]
     Active Substance: ENOXAPARIN SODIUM
     Indication: THROMBOSIS PROPHYLAXIS
  16. TEDUGLUTIDE [Suspect]
     Active Substance: TEDUGLUTIDE
     Dosage: 3.5 MG, 1X/DAY:QD
     Route: 065
     Dates: start: 20160830
  17. TEDUGLUTIDE [Suspect]
     Active Substance: TEDUGLUTIDE
     Dosage: UNK UNK, 1X/DAY:QD
     Route: 065
     Dates: start: 20170724
  18. TEDUGLUTIDE [Suspect]
     Active Substance: TEDUGLUTIDE
     Dosage: UNK UNK, 1X/DAY:QD
     Route: 065
     Dates: start: 20170724
  19. CODEINE [Concomitant]
     Active Substance: CODEINE
     Indication: SHORT-BOWEL SYNDROME

REACTIONS (2)
  - Acute kidney injury [Not Recovered/Not Resolved]
  - Bacteraemia [Not Recovered/Not Resolved]

NARRATIVE: CASE EVENT DATE: 20171208
